FAERS Safety Report 14243757 (Version 2)
Quarter: 2024Q1

REPORT INFORMATION
  Report Type: Spontaneous
  Country: BE (occurrence: BE)
  Receive Date: 20171201
  Receipt Date: 20240315
  Transmission Date: 20240410
  Serious: Yes (Death, Hospitalization, Other)
  Sender: FDA-Public Use
  Company Number: BE-SA-2017SA223223

PATIENT
  Age: 27 Year
  Sex: Female

DRUGS (16)
  1. BUSULFAN [Suspect]
     Active Substance: BUSULFAN
     Indication: Bone marrow conditioning regimen
     Dosage: UNK
     Route: 065
  2. CYCLOPHOSPHAMIDE [Suspect]
     Active Substance: CYCLOPHOSPHAMIDE
     Indication: Bone marrow conditioning regimen
     Dosage: UNK
     Route: 042
  3. VALGANCICLOVIR HYDROCHLORIDE [Suspect]
     Active Substance: VALGANCICLOVIR HYDROCHLORIDE
     Indication: Cytomegalovirus infection reactivation
     Dosage: UNK
     Route: 065
  4. FLUDARABINE PHOSPHATE [Suspect]
     Active Substance: FLUDARABINE PHOSPHATE
     Indication: Bone marrow conditioning regimen
     Dosage: UNK
     Route: 065
  5. TACROLIMUS [Suspect]
     Active Substance: TACROLIMUS
     Indication: Prophylaxis against graft versus host disease
     Dosage: UNK
     Route: 065
  6. LAPINE T-LYMPHOCYTE IMMUNE GLOBULIN [Suspect]
     Active Substance: LAPINE T-LYMPHOCYTE IMMUNE GLOBULIN
     Indication: Bone marrow conditioning regimen
     Dosage: UNK
     Route: 065
  7. MYCOPHENOLATE MOFETIL [Suspect]
     Active Substance: MYCOPHENOLATE MOFETIL
     Indication: Prophylaxis against graft versus host disease
     Dosage: UNK
     Route: 065
  8. POSACONAZOLE [Suspect]
     Active Substance: POSACONAZOLE
     Indication: Oral candidiasis
     Dosage: UNK
     Route: 065
  9. LAPINE T-LYMPHOCYTE IMMUNE GLOBULIN [Suspect]
     Active Substance: LAPINE T-LYMPHOCYTE IMMUNE GLOBULIN
     Indication: Bone marrow conditioning regimen
     Dosage: UNK
     Route: 065
  10. FOSCAVIR [Concomitant]
     Active Substance: FOSCARNET SODIUM
     Indication: Bone marrow conditioning regimen
     Dosage: UNK
     Route: 065
  11. CASPOFUNGIN [Concomitant]
     Active Substance: CASPOFUNGIN
     Indication: Product used for unknown indication
     Dosage: UNK
     Route: 065
  12. METRONIDAZOLE [Concomitant]
     Active Substance: METRONIDAZOLE
     Indication: Product used for unknown indication
     Dosage: UNK
     Route: 065
  13. PIPERACILLIN SODIUM\TAZOBACTAM SODIUM [Concomitant]
     Active Substance: PIPERACILLIN SODIUM\TAZOBACTAM SODIUM
     Indication: Product used for unknown indication
     Dosage: UNK
     Route: 065
  14. CEFTAZIDIME [Concomitant]
     Active Substance: CEFTAZIDIME
     Indication: Product used for unknown indication
     Dosage: UNK
     Route: 065
  15. IMMUNE GLOBULIN NOS [Concomitant]
     Active Substance: IMMUNE GLOBULIN NOS
     Indication: Supportive care
     Dosage: UNK, WEEKLY
     Route: 065
  16. URSODIOL [Concomitant]
     Active Substance: URSODIOL
     Indication: Product used for unknown indication
     Dosage: 750 MG, TID (3/DAY)
     Route: 065

REACTIONS (29)
  - Hepatic failure [Fatal]
  - Hepatic necrosis [Fatal]
  - Disseminated intravascular coagulation [Fatal]
  - Hepatic pain [Fatal]
  - Cholestasis [Fatal]
  - Hepatic cytolysis [Fatal]
  - Adenoviral hepatitis [Fatal]
  - Venous haemorrhage [Fatal]
  - Hepatomegaly [Fatal]
  - Oedema [Fatal]
  - Rash [Fatal]
  - Pyrexia [Fatal]
  - Diarrhoea [Fatal]
  - Toxicity to various agents [Unknown]
  - Venoocclusive liver disease [Unknown]
  - Pancytopenia [Unknown]
  - Ascites [Unknown]
  - Staphylococcal sepsis [Unknown]
  - Cytomegalovirus infection reactivation [Unknown]
  - Oral candidiasis [Unknown]
  - Liver function test abnormal [Unknown]
  - Pain [Unknown]
  - Myelosuppression [Unknown]
  - Neutropenia [Unknown]
  - Weight decreased [Unknown]
  - Decreased appetite [Unknown]
  - Pyrexia [Unknown]
  - Nausea [Unknown]
  - Vomiting [Unknown]
